FAERS Safety Report 9747271 (Version 1)
Quarter: 2013Q4

REPORT INFORMATION
  Report Type: Spontaneous
  Country: AT (occurrence: AT)
  Receive Date: 20131212
  Receipt Date: 20131212
  Transmission Date: 20140711
  Serious: Yes (Life-Threatening)
  Sender: FDA-Public Use
  Company Number: AT-AMGEN-AUTSP2013086271

PATIENT
  Age: 73 Year
  Sex: Female
  Weight: 58 kg

DRUGS (4)
  1. ENBREL [Suspect]
     Indication: RHEUMATOID ARTHRITIS
     Dosage: 50 MG, WEEKLY
     Route: 058
     Dates: start: 201106, end: 201311
  2. NOVALGIN                           /06276704/ [Concomitant]
     Dosage: UNK
  3. ACTONEL [Concomitant]
     Dosage: UNK
  4. DUROGESIC [Concomitant]
     Dosage: UNK

REACTIONS (1)
  - Diffuse large B-cell lymphoma [Unknown]
